FAERS Safety Report 25590105 (Version 2)
Quarter: 2025Q3

REPORT INFORMATION
  Report Type: Spontaneous
  Country: CN (occurrence: CN)
  Receive Date: 20250722
  Receipt Date: 20250729
  Transmission Date: 20251020
  Serious: Yes (Other)
  Sender: NOVO NORDISK
  Company Number: CN-NOVOPROD-1479561

PATIENT
  Age: 52 Year
  Sex: Female
  Weight: 60 kg

DRUGS (3)
  1. INSULIN ASPART [Suspect]
     Active Substance: INSULIN ASPART
     Indication: Product used for unknown indication
     Dosage: 50 IU, QD(26 UNITS BEFORE BREAKFAST AND 24 UNITS BEFORE DINNER, SEVEN YEARS)
  2. INSULIN ASPART [Suspect]
     Active Substance: INSULIN ASPART
     Dosage: 52 IU, QD(26 UNITS BEFORE BREAKFAST AND 26 UNITS BEFORE DINNER)
  3. METFORMIN\SITAGLIPTIN [Concomitant]
     Active Substance: METFORMIN\SITAGLIPTIN
     Indication: Product used for unknown indication

REACTIONS (4)
  - Xerophthalmia [Recovering/Resolving]
  - Cardiac disorder [Unknown]
  - Blood glucose increased [Not Recovered/Not Resolved]
  - Glycosylated haemoglobin increased [Unknown]

NARRATIVE: CASE EVENT DATE: 20250501
